FAERS Safety Report 11214859 (Version 1)
Quarter: 2015Q2

REPORT INFORMATION
  Report Type: Spontaneous
  Country: US (occurrence: None)
  Receive Date: 20150622
  Receipt Date: 20150622
  Transmission Date: 20150821
  Serious: No
  Sender: FDA-Public Use
  Company Number: None

PATIENT
  Age: 73 Year
  Sex: Female

DRUGS (1)
  1. STELARA [Suspect]
     Active Substance: USTEKINUMAB
     Route: 058
     Dates: start: 20131028

REACTIONS (3)
  - Cardiac failure [None]
  - Upper respiratory tract infection [None]
  - Electrolyte imbalance [None]

NARRATIVE: CASE EVENT DATE: 20150603
